FAERS Safety Report 25859613 (Version 1)
Quarter: 2025Q3

REPORT INFORMATION
  Report Type: Spontaneous
  Country: US (occurrence: US)
  Receive Date: 20250929
  Receipt Date: 20250929
  Transmission Date: 20251020
  Serious: No
  Sender: DR REDDYS
  Company Number: US-DRL-USA-USA/2025/08/012245

PATIENT
  Sex: Female

DRUGS (1)
  1. DOANS EXTRA STRENGTH [Suspect]
     Active Substance: MAGNESIUM SALICYLATE
     Indication: Product used for unknown indication
     Route: 065

REACTIONS (3)
  - Product use complaint [Unknown]
  - Product size issue [Unknown]
  - Choking sensation [Unknown]
